FAERS Safety Report 5266215-8 (Version None)
Quarter: 2007Q1

REPORT INFORMATION
  Report Type: 
  Country: None (occurrence: None)
  Receive Date: 20070315
  Receipt Date: 20070314
  Transmission Date: 20070707
  Serious: Yes (Other)
  Sender: FDA-Public Use
  Company Number: US-GLAXOSMITHKLINE-A0643109A

PATIENT
  Age: 33 Year
  Sex: Female
  Weight: 63.5 kg

DRUGS (7)
  1. FLOLAN [Suspect]
     Dosage: 19NGKM UNKNOWN
     Route: 042
     Dates: start: 19990823
  2. PROPRANOLOL [Concomitant]
     Dosage: 10MG TWICE PER DAY
     Route: 048
  3. COUMADIN [Concomitant]
     Dosage: 2MG PER DAY
     Route: 048
  4. VIAGRA [Concomitant]
     Dosage: 25MG THREE TIMES PER DAY
     Route: 048
  5. PRILOSEC [Concomitant]
     Dosage: 20MG PER DAY
     Route: 048
  6. TYLENOL [Concomitant]
     Dosage: 500MG AS REQUIRED
     Route: 048
  7. DIGOXIN [Concomitant]
     Dosage: .25MG PER DAY
     Route: 048

REACTIONS (2)
  - CATHETER RELATED COMPLICATION [None]
  - PHARMACEUTICAL PRODUCT COMPLAINT [None]
